FAERS Safety Report 10270383 (Version 1)
Quarter: 2014Q3

REPORT INFORMATION
  Report Type: Spontaneous
  Country: US (occurrence: US)
  Receive Date: 20140701
  Receipt Date: 20140701
  Transmission Date: 20150326
  Serious: Yes (Hospitalization)
  Sender: FDA-Public Use
  Company Number: US-SA-2014SA082937

PATIENT
  Sex: Female
  Weight: 91 kg

DRUGS (4)
  1. AMBIEN [Concomitant]
     Active Substance: ZOLPIDEM TARTRATE
  2. LANTUS [Suspect]
     Active Substance: INSULIN GLARGINE
     Indication: DIABETES MELLITUS
     Route: 065
  3. CODEINE [Suspect]
     Active Substance: CODEINE
     Indication: NASOPHARYNGITIS
     Route: 065
  4. PERCOCET [Suspect]
     Active Substance: ACETAMINOPHEN\OXYCODONE HYDROCHLORIDE
     Indication: MUSCULOSKELETAL DISORDER
     Route: 065

REACTIONS (13)
  - Depressed level of consciousness [Unknown]
  - Peripheral coldness [Unknown]
  - Apnoea [Recovered/Resolved]
  - Pallor [Unknown]
  - Incorrect dose administered [Unknown]
  - Respiratory disorder [Unknown]
  - Unresponsive to stimuli [Recovered/Resolved]
  - Heart rate decreased [Unknown]
  - Hypoglycaemia [Unknown]
  - Respiratory rate decreased [Unknown]
  - Oxygen saturation decreased [Unknown]
  - Hyperhidrosis [Unknown]
  - Lipohypertrophy [Unknown]
